FAERS Safety Report 8739289 (Version 2)
Quarter: 2012Q4

REPORT INFORMATION
  Report Type: 
  Country: FR (occurrence: FR)
  Receive Date: 20120823
  Receipt Date: 20120918
  Transmission Date: 20130627
  Serious: Yes (Hospitalization, Other)
  Sender: FDA-Public Use
  Company Number: FR-ELI_LILLY_AND_COMPANY-FR201208005182

PATIENT
  Age: 58 Year
  Sex: Male

DRUGS (9)
  1. EFIENT [Suspect]
     Dosage: 10 mg, qd
     Route: 048
     Dates: start: 20120422
  2. KARDEGIC [Concomitant]
     Dosage: 75 mg, qd
     Dates: start: 20120422
  3. IXPRIM [Concomitant]
  4. LAMALINE [Concomitant]
  5. COVERSYL [Concomitant]
  6. ESOMEPRAZOLE [Concomitant]
  7. ACEBUTOLOL [Concomitant]
  8. NATISPRAY [Concomitant]
  9. ATORVASTATIN [Concomitant]

REACTIONS (3)
  - Gastrointestinal haemorrhage [Recovered/Resolved]
  - Anaemia [Recovered/Resolved]
  - Presyncope [Unknown]
